FAERS Safety Report 7624921-1 (Version None)
Quarter: 2011Q3

REPORT INFORMATION
  Report Type: 
  Country: None (occurrence: None)
  Receive Date: 20110720
  Receipt Date: 20110708
  Transmission Date: 20111222
  Serious: Yes (Hospitalization, Other)
  Sender: FDA-Public Use
  Company Number: US-AMGEN-USASP2011027906

PATIENT
  Age: 77 Year
  Sex: Female

DRUGS (2)
  1. ENBREL [Suspect]
     Indication: RHEUMATOID ARTHRITIS
     Dosage: 50 MG, QWK
     Dates: start: 19981201
  2. ENBREL [Suspect]
     Indication: PSORIASIS

REACTIONS (11)
  - ROTATOR CUFF SYNDROME [None]
  - IMPAIRED HEALING [None]
  - UPPER LIMB FRACTURE [None]
  - PELVIC FRACTURE [None]
  - RIB FRACTURE [None]
  - REHABILITATION THERAPY [None]
  - WOUND INFECTION [None]
  - ROAD TRAFFIC ACCIDENT [None]
  - RHEUMATOID ARTHRITIS [None]
  - WOUND [None]
  - MOBILITY DECREASED [None]
